FAERS Safety Report 5035223-4 (Version None)
Quarter: 2006Q2

REPORT INFORMATION
  Report Type: 
  Country: None (occurrence: None)
  Receive Date: 20060622
  Receipt Date: 20060622
  Transmission Date: 20061013
  Serious: Yes (Hospitalization)
  Sender: FDA-Public Use
  Company Number: None

PATIENT
  Age: 41 Day
  Sex: Female
  Weight: 4 kg

DRUGS (3)
  1. CHLORPHENIRAMINE [Suspect]
     Dosage: 1MG  QID PO
     Route: 048
     Dates: start: 20050310, end: 20050311
  2. PARACETAMOL [Concomitant]
  3. BROMHEXINE [Concomitant]

REACTIONS (5)
  - CONDITION AGGRAVATED [None]
  - NASAL CONGESTION [None]
  - OXYGEN SATURATION DECREASED [None]
  - RESPIRATORY DEPRESSION [None]
  - SEDATION [None]
